FAERS Safety Report 4304759-3 (Version None)
Quarter: 2004Q1

REPORT INFORMATION
  Report Type: 
  Country: None (occurrence: None)
  Receive Date: 20040225
  Receipt Date: 20040225
  Transmission Date: 20041129
  Serious: Yes (Hospitalization)
  Sender: FDA-Public Use
  Company Number: None

PATIENT
  Sex: Female

DRUGS (2)
  1. DESOGESTREL AND ETHINYL ESTRADIOL [Suspect]
     Dosage: 1X/D
  2. MIRCETTE OCP [Concomitant]

REACTIONS (8)
  - ABDOMINAL PAIN [None]
  - CARDIOVASCULAR DISORDER [None]
  - COLITIS ISCHAEMIC [None]
  - DIARRHOEA [None]
  - HAEMATOCHEZIA [None]
  - STOOLS WATERY [None]
  - THROMBOSIS [None]
  - WHITE BLOOD CELL COUNT INCREASED [None]
